FAERS Safety Report 14656623 (Version 7)
Quarter: 2021Q3

REPORT INFORMATION
  Report Type: Report from Study
  Country: SE (occurrence: SE)
  Receive Date: 20180319
  Receipt Date: 20210831
  Transmission Date: 20211014
  Serious: Yes (Other)
  Sender: FDA-Public Use
  Company Number: SE-BRISTOL-MYERS SQUIBB COMPANY-BMS-2018-023236

PATIENT
  Age: 87 Year
  Sex: Male

DRUGS (6)
  1. PRAVASTATIN SODIUM. [Suspect]
     Active Substance: PRAVASTATIN SODIUM
     Indication: HYPERLIPIDAEMIA
     Route: 048
  2. ENALAPRIL [Interacting]
     Active Substance: ENALAPRIL
     Indication: HYPERTENSION
     Route: 048
  3. RISPERIDONE. [Concomitant]
     Active Substance: RISPERIDONE
     Indication: PRODUCT USED FOR UNKNOWN INDICATION
     Dosage: UNK
     Route: 065
  4. IBUPROFEN. [Interacting]
     Active Substance: IBUPROFEN
     Indication: PRODUCT USED FOR UNKNOWN INDICATION
     Dosage: UNK
     Route: 048
  5. RIVAROXABAN [Concomitant]
     Active Substance: RIVAROXABAN
     Indication: PRODUCT USED FOR UNKNOWN INDICATION
     Dosage: UNK
     Route: 065
  6. CIPROFLOXACIN. [Interacting]
     Active Substance: CIPROFLOXACIN
     Indication: URINARY TRACT INFECTION
     Route: 048

REACTIONS (6)
  - Acute kidney injury [Recovered/Resolved]
  - Diarrhoea [Recovered/Resolved]
  - Drug interaction [Recovered/Resolved]
  - Speech disorder [Recovered/Resolved]
  - Gait disturbance [Recovered/Resolved]
  - Blood glucose abnormal [Recovered/Resolved]
